FAERS Safety Report 21790104 (Version 1)
Quarter: 2022Q4

REPORT INFORMATION
  Report Type: Spontaneous
  Country: CZ (occurrence: CZ)
  Receive Date: 20221228
  Receipt Date: 20221228
  Transmission Date: 20230113
  Serious: Yes (Hospitalization, Other)
  Sender: FDA-Public Use
  Company Number: CZ-GLENMARK PHARMACEUTICALS-2022GMK076075

PATIENT
  Age: 68 Year
  Sex: Male

DRUGS (2)
  1. VINORELBINE [Suspect]
     Active Substance: VINORELBINE TARTRATE
     Indication: Desmoid tumour
     Dosage: UNK
     Route: 065
     Dates: start: 201801
  2. METHOTREXATE [Suspect]
     Active Substance: METHOTREXATE
     Indication: Desmoid tumour
     Dosage: UNK
     Route: 065

REACTIONS (4)
  - Desmoid tumour [Recovered/Resolved]
  - Neoplasm progression [Recovered/Resolved]
  - Drug ineffective [Unknown]
  - Adverse drug reaction [Unknown]

NARRATIVE: CASE EVENT DATE: 20180101
